FAERS Safety Report 22269868 (Version 2)
Quarter: 2023Q2

REPORT INFORMATION
  Report Type: Spontaneous
  Country: CN (occurrence: CN)
  Receive Date: 20230501
  Receipt Date: 20230503
  Transmission Date: 20230721
  Serious: Yes (Other)
  Sender: FDA-Public Use
  Company Number: CN-MLMSERVICE-20230414-4226497-1

PATIENT
  Age: 45 Year
  Sex: Male
  Weight: 85 kg

DRUGS (9)
  1. LINEZOLID [Suspect]
     Active Substance: LINEZOLID
     Indication: Meningitis tuberculous
     Dosage: 600 MG, 2X/DAY
     Dates: start: 20211213, end: 20221227
  2. LINEZOLID [Suspect]
     Active Substance: LINEZOLID
     Indication: Antibiotic therapy
     Dosage: 600 MG, 1X/DAY
     Dates: start: 20211228
  3. ISONIAZID [Suspect]
     Active Substance: ISONIAZID
     Indication: Meningitis tuberculous
     Dosage: 800 MG, 1X/DAY
     Dates: start: 20211213, end: 20221227
  4. ISONIAZID [Suspect]
     Active Substance: ISONIAZID
     Dosage: 600 MG, 1X/DAY
     Dates: start: 20211228
  5. CLOFAZIMINE [Concomitant]
     Active Substance: CLOFAZIMINE
     Indication: Meningitis tuberculous
     Dosage: 100 MG, 1X/DAY
     Dates: start: 20211213
  6. DEXAMETHASONE [Concomitant]
     Active Substance: DEXAMETHASONE
     Indication: Meningitis tuberculous
     Dosage: 10 MG, 1X/DAY
     Dates: start: 20211213
  7. PYRAZINAMIDE [Concomitant]
     Active Substance: PYRAZINAMIDE
     Indication: Meningitis tuberculous
     Dosage: 1500 MG, 1X/DAY
     Dates: start: 20211213
  8. CYCLOSERINE [Concomitant]
     Active Substance: CYCLOSERINE
     Indication: Meningitis tuberculous
     Dosage: 500 MG, 1X/DAY
     Dates: start: 20211213
  9. MOXIFLOXACIN [Concomitant]
     Active Substance: MOXIFLOXACIN
     Indication: Meningitis tuberculous
     Dosage: 400 MG, DAILY
     Dates: start: 20211213

REACTIONS (4)
  - Neuropathy peripheral [Recovered/Resolved]
  - Toxicity to various agents [Recovered/Resolved]
  - Anaemia [Recovered/Resolved]
  - Off label use [Unknown]

NARRATIVE: CASE EVENT DATE: 20211213
